FAERS Safety Report 12586125 (Version 9)
Quarter: 2024Q4

REPORT INFORMATION
  Report Type: Report from Study
  Country: US (occurrence: US)
  Receive Date: 20160725
  Receipt Date: 20241106
  Transmission Date: 20250115
  Serious: Yes (Other)
  Sender: JAZZ
  Company Number: US-JAZZ-2016-US-002140

PATIENT
  Sex: Male

DRUGS (66)
  1. XYREM [Suspect]
     Active Substance: SODIUM OXYBATE
     Indication: Narcolepsy
     Dosage: 4.5 GRAM, BID
     Route: 048
     Dates: start: 200912
  2. XYREM [Suspect]
     Active Substance: SODIUM OXYBATE
     Indication: Cataplexy
     Dosage: 4.5 GRAM, BID
     Route: 048
     Dates: start: 202109
  3. XYREM [Suspect]
     Active Substance: SODIUM OXYBATE
     Indication: Somnolence
     Dosage: UNK
  4. PREGABALIN [Suspect]
     Active Substance: PREGABALIN
     Indication: Neuropathy peripheral
     Dosage: UNK
  5. EPINEPHRINE HYDROCHLORIDE [Suspect]
     Active Substance: EPINEPHRINE HYDROCHLORIDE
     Indication: Product used for unknown indication
     Dosage: UNK
  6. LISINOPRIL [Suspect]
     Active Substance: LISINOPRIL
     Indication: Hypertension
     Dosage: UNK (1 TABLET BY MOUTH EVERY DAY)
     Dates: start: 20240912
  7. LOSARTAN POTASSIUM [Concomitant]
     Active Substance: LOSARTAN POTASSIUM
     Indication: Hypertension
     Dosage: UNK
  8. CIALIS [Concomitant]
     Active Substance: TADALAFIL
     Indication: Erectile dysfunction
     Dosage: UNK
     Dates: start: 20100122
  9. ADDERALL [Concomitant]
     Active Substance: AMPHETAMINE ASPARTATE\AMPHETAMINE SULFATE\DEXTROAMPHETAMINE SACCHARATE\DEXTROAMPHETAMINE SULFATE
     Indication: Narcolepsy
     Dosage: UNK
     Dates: start: 20091002
  10. ADDERALL [Concomitant]
     Active Substance: AMPHETAMINE ASPARTATE\AMPHETAMINE SULFATE\DEXTROAMPHETAMINE SACCHARATE\DEXTROAMPHETAMINE SULFATE
     Indication: Cataplexy
     Dosage: 20 MG CAPSULE
     Dates: start: 20241014
  11. NUVIGIL [Concomitant]
     Active Substance: ARMODAFINIL
     Indication: Product used for unknown indication
     Dosage: UNK
     Dates: start: 20090904
  12. AMPHETAMINE [Concomitant]
     Active Substance: AMPHETAMINE
     Indication: Product used for unknown indication
     Dosage: UNK
     Dates: end: 20160204
  13. AMPHETAMINE [Concomitant]
     Active Substance: AMPHETAMINE
     Dosage: UNK
     Dates: end: 20160204
  14. AMPHETAMINE [Concomitant]
     Active Substance: AMPHETAMINE
     Dosage: UNK
     Dates: end: 20160204
  15. AMPHETAMINE [Concomitant]
     Active Substance: AMPHETAMINE
     Dosage: UNK
     Dates: end: 20160204
  16. AMPHETAMINE [Concomitant]
     Active Substance: AMPHETAMINE
     Dosage: UNK
     Dates: end: 20160204
  17. AMPHETAMINE [Concomitant]
     Active Substance: AMPHETAMINE
     Dosage: UNK
     Dates: end: 20160204
  18. AMPHETAMINE [Concomitant]
     Active Substance: AMPHETAMINE
     Dosage: UNK
     Dates: end: 20160204
  19. AMPHETAMINE [Concomitant]
     Active Substance: AMPHETAMINE
     Dosage: UNK
     Dates: end: 20160204
  20. CONCERTA [Concomitant]
     Active Substance: METHYLPHENIDATE HYDROCHLORIDE
     Indication: Product used for unknown indication
     Dosage: UNK
  21. CONCERTA [Concomitant]
     Active Substance: METHYLPHENIDATE HYDROCHLORIDE
     Dosage: UNK
  22. CONCERTA [Concomitant]
     Active Substance: METHYLPHENIDATE HYDROCHLORIDE
     Dosage: UNK
  23. CONCERTA [Concomitant]
     Active Substance: METHYLPHENIDATE HYDROCHLORIDE
     Dosage: UNK
  24. CONCERTA [Concomitant]
     Active Substance: METHYLPHENIDATE HYDROCHLORIDE
     Dosage: UNK
  25. CONCERTA [Concomitant]
     Active Substance: METHYLPHENIDATE HYDROCHLORIDE
     Dosage: UNK
  26. CONCERTA [Concomitant]
     Active Substance: METHYLPHENIDATE HYDROCHLORIDE
     Dosage: UNK
  27. CONCERTA [Concomitant]
     Active Substance: METHYLPHENIDATE HYDROCHLORIDE
     Dosage: UNK
  28. SUNOSI [Concomitant]
     Active Substance: SOLRIAMFETOL
     Indication: Product used for unknown indication
     Dosage: UNK
     Dates: start: 20210603
  29. TESTOSTERONE [Concomitant]
     Active Substance: TESTOSTERONE
     Indication: Product used for unknown indication
     Dosage: UNK
     Dates: start: 20220422
  30. FINASTERIDE [Concomitant]
     Active Substance: FINASTERIDE
     Indication: Alopecia
     Dosage: UNK
  31. FINASTERIDE [Concomitant]
     Active Substance: FINASTERIDE
     Dosage: UNK
  32. FINASTERIDE [Concomitant]
     Active Substance: FINASTERIDE
     Dosage: UNK
  33. FINASTERIDE [Concomitant]
     Active Substance: FINASTERIDE
     Dosage: UNK
  34. FINASTERIDE [Concomitant]
     Active Substance: FINASTERIDE
     Dosage: UNK
  35. FINASTERIDE [Concomitant]
     Active Substance: FINASTERIDE
     Dosage: UNK
  36. FINASTERIDE [Concomitant]
     Active Substance: FINASTERIDE
     Dosage: UNK
  37. FINASTERIDE [Concomitant]
     Active Substance: FINASTERIDE
     Dosage: UNK
  38. MODAFINIL [Concomitant]
     Active Substance: MODAFINIL
     Indication: Product used for unknown indication
     Dosage: UNK
  39. MODAFINIL [Concomitant]
     Active Substance: MODAFINIL
     Dosage: UNK
  40. MODAFINIL [Concomitant]
     Active Substance: MODAFINIL
     Dosage: UNK
  41. MODAFINIL [Concomitant]
     Active Substance: MODAFINIL
     Dosage: UNK
  42. MODAFINIL [Concomitant]
     Active Substance: MODAFINIL
     Dosage: UNK
  43. MODAFINIL [Concomitant]
     Active Substance: MODAFINIL
     Dosage: UNK
  44. MODAFINIL [Concomitant]
     Active Substance: MODAFINIL
     Dosage: UNK
  45. MODAFINIL [Concomitant]
     Active Substance: MODAFINIL
     Dosage: UNK
  46. PREDNISONE [Concomitant]
     Active Substance: PREDNISONE
     Indication: Product used for unknown indication
     Dosage: UNK
  47. PREDNISONE [Concomitant]
     Active Substance: PREDNISONE
     Dosage: UNK
  48. PREDNISONE [Concomitant]
     Active Substance: PREDNISONE
     Dosage: UNK
  49. PREDNISONE [Concomitant]
     Active Substance: PREDNISONE
     Dosage: UNK
  50. PREDNISONE [Concomitant]
     Active Substance: PREDNISONE
     Dosage: UNK
  51. PREDNISONE [Concomitant]
     Active Substance: PREDNISONE
     Dosage: UNK
  52. PREDNISONE [Concomitant]
     Active Substance: PREDNISONE
     Dosage: UNK
  53. PREDNISONE [Concomitant]
     Active Substance: PREDNISONE
     Dosage: UNK
  54. TAMSULOSIN HYDROCHLORIDE [Concomitant]
     Active Substance: TAMSULOSIN HYDROCHLORIDE
     Indication: Product used for unknown indication
     Dosage: UNK
     Dates: start: 20221024
  55. ARMODAFINIL [Concomitant]
     Active Substance: ARMODAFINIL
     Indication: Product used for unknown indication
     Dosage: UNK
     Dates: start: 20240105
  56. VITAMINS [Concomitant]
     Active Substance: VITAMINS
     Indication: Product used for unknown indication
     Dosage: UNK
     Dates: start: 20170101
  57. COENZYME Q10 [Concomitant]
     Active Substance: DIETARY SUPPLEMENT\UBIDECARENONE
     Indication: Product used for unknown indication
     Dosage: UNK
     Dates: start: 20240115
  58. WAKIX [Concomitant]
     Active Substance: PITOLISANT HYDROCHLORIDE
     Indication: Somnolence
     Dosage: UNK (FOLLOW TITRATING DOSE TO SET DOSE OF 35.6MG)
  59. WAKIX [Concomitant]
     Active Substance: PITOLISANT HYDROCHLORIDE
     Indication: Narcolepsy
     Dosage: UNK (FOLLOW TITRATING DOSE TO SET DOSE OF 35.6MG)
  60. WAKIX [Concomitant]
     Active Substance: PITOLISANT HYDROCHLORIDE
     Indication: Cataplexy
  61. CENTRUM MINIS MEN 50+ [Concomitant]
     Indication: Product used for unknown indication
     Dosage: UNK (1 TABLET DAILY)
  62. HERBALS\TURMERIC [Concomitant]
     Active Substance: HERBALS\TURMERIC
     Indication: Product used for unknown indication
     Dosage: UNK (3 CAPSULES TWICE A DAY)
  63. VITAMIN C [Concomitant]
     Active Substance: ASCORBIC ACID
     Indication: Product used for unknown indication
     Dosage: UNK (1 TABLET DAILY)
  64. VITAMIN B12 [Concomitant]
     Active Substance: CYANOCOBALAMIN
     Indication: Product used for unknown indication
     Dosage: UNK
     Dates: start: 20240604
  65. TADALAFIL [Concomitant]
     Active Substance: TADALAFIL
     Indication: Erectile dysfunction
     Dosage: UNK
     Dates: start: 20240711
  66. AMLODIPINE [Concomitant]
     Active Substance: AMLODIPINE BESYLATE
     Indication: Product used for unknown indication
     Dosage: UNK

REACTIONS (14)
  - Neuropathy peripheral [Recovered/Resolved]
  - Intervertebral disc compression [Unknown]
  - Root canal infection [Unknown]
  - Hypertension [Unknown]
  - Nasopharyngitis [Recovering/Resolving]
  - Urticaria [Recovered/Resolved]
  - Tooth abscess [Unknown]
  - Gastrointestinal disorder [Unknown]
  - Tremor [Recovered/Resolved]
  - Eye injury [Recovering/Resolving]
  - Cough [Unknown]
  - Tinnitus [Unknown]
  - Product administration interrupted [Unknown]
  - Product dose omission issue [Unknown]
